FAERS Safety Report 4427093-X (Version None)
Quarter: 2004Q3

REPORT INFORMATION
  Report Type: 
  Country: None (occurrence: None)
  Receive Date: 20040726
  Receipt Date: 20040506
  Transmission Date: 20050211
  Serious: No
  Sender: FDA-Public Use
  Company Number: USA040465295

PATIENT
  Age: 79 Year
  Sex: Female
  Weight: 65 kg

DRUGS (9)
  1. FORTEO [Suspect]
     Indication: OSTEOPOROSIS
     Dosage: 20 UG/1 DAY
     Dates: start: 20040415, end: 20040416
  2. PREDNISONE [Concomitant]
  3. STEROIDS [Concomitant]
  4. REMICADE [Concomitant]
  5. TOPROL-XL [Concomitant]
  6. PREVACHOL (PRAVASTATIN SODIUM) [Concomitant]
  7. NEXIUM [Concomitant]
  8. METHOTREXATE [Concomitant]
  9. ARIMIDEX [Concomitant]

REACTIONS (3)
  - CHEST PAIN [None]
  - DIZZINESS [None]
  - MUSCLE CRAMP [None]
